FAERS Safety Report 11176575 (Version 1)
Quarter: 2015Q2

REPORT INFORMATION
  Report Type: Spontaneous
  Country: US (occurrence: None)
  Receive Date: 20150608
  Receipt Date: 20150608
  Transmission Date: 20150821
  Serious: No
  Sender: FDA-Public Use
  Company Number: 1210513-2015-00134

PATIENT
  Sex: Male

DRUGS (1)
  1. DR SHEFFIELD MUSCLE RUB CREAM [Suspect]
     Active Substance: MENTHOL\METHYL SALICYLATE
     Route: 061
     Dates: start: 20150324

REACTIONS (2)
  - Application site pain [None]
  - Application site vesicles [None]

NARRATIVE: CASE EVENT DATE: 20150324
